FAERS Safety Report 5389115-1 (Version None)
Quarter: 2007Q3

REPORT INFORMATION
  Report Type: 
  Country: None (occurrence: None)
  Receive Date: 20070717
  Receipt Date: 20070706
  Transmission Date: 20080115
  Serious: Yes (Other)
  Sender: FDA-Public Use
  Company Number: BR-ROCHE-506457

PATIENT
  Age: 35 Year
  Sex: Female
  Weight: 62 kg

DRUGS (5)
  1. RIVOTRIL [Suspect]
     Indication: ANXIETY DISORDER
     Route: 048
     Dates: start: 20000101, end: 20070501
  2. AMITRIPTYLINE HCL [Concomitant]
     Dates: end: 20070501
  3. PASSION FLOWER [Concomitant]
  4. PLASIL [Concomitant]
  5. 1 CONCOMITANT DRUG [Concomitant]
     Indication: CONTRACEPTION

REACTIONS (1)
  - ABORTION SPONTANEOUS [None]
